FAERS Safety Report 9286966 (Version 1)
Quarter: 2013Q2

REPORT INFORMATION
  Report Type: Spontaneous
  Country: US (occurrence: US)
  Receive Date: 20130513
  Receipt Date: 20130513
  Transmission Date: 20140414
  Serious: Yes (Hospitalization)
  Sender: FDA-Public Use
  Company Number: US-B.I. PHARMACEUTICALS,INC./RIDGEFIELD-2013-RO-00721RO

PATIENT
  Age: 52 Year
  Sex: Male

DRUGS (5)
  1. LACTULOSE SOLUTION USP, 10 G/15 ML [Suspect]
     Indication: CONSTIPATION
  2. AMLODIPINE [Suspect]
  3. CATAPRES [Suspect]
     Indication: HYPERTENSION
  4. FERROUS SULFIDE [Suspect]
  5. HYDRALAZINE [Suspect]
     Indication: HYPERTENSION

REACTIONS (1)
  - Gastrointestinal tract mucosal pigmentation [Recovered/Resolved]
